FAERS Safety Report 7058124-9 (Version None)
Quarter: 2010Q4

REPORT INFORMATION
  Report Type: 
  Country: None (occurrence: None)
  Receive Date: 20101022
  Receipt Date: 20101015
  Transmission Date: 20110411
  Serious: Yes (Hospitalization)
  Sender: FDA-Public Use
  Company Number: JP-MERCK-1009USA00876

PATIENT
  Age: 55 Year
  Sex: Female

DRUGS (13)
  1. ZETIA [Suspect]
     Indication: HYPERCHOLESTEROLAEMIA
     Route: 048
     Dates: start: 20090605
  2. ZETIA [Suspect]
     Route: 048
     Dates: start: 20091211
  3. ZETIA [Suspect]
     Route: 048
     Dates: start: 20100219
  4. ZETIA [Suspect]
     Route: 048
     Dates: start: 20100405
  5. ZETIA [Suspect]
     Route: 048
     Dates: start: 20100702
  6. ZETIA [Suspect]
     Route: 048
     Dates: start: 20100823, end: 20100827
  7. FAMOTIDINE [Concomitant]
     Route: 065
     Dates: start: 20090605
  8. NEOMYCIN [Concomitant]
     Route: 065
     Dates: start: 20091221
  9. NEOMYCIN [Concomitant]
     Route: 065
     Dates: start: 20100405
  10. ROXATIDINE ACETATE HYDROCHLORIDE [Concomitant]
     Route: 065
     Dates: start: 20100122
  11. MOSAPRIDE CITRATE [Concomitant]
     Route: 065
     Dates: start: 20100122
  12. MOSAPRIDE CITRATE [Concomitant]
     Route: 065
     Dates: start: 20100217
  13. OMEPRAZOLE [Concomitant]
     Route: 065
     Dates: start: 20100122

REACTIONS (1)
  - LIVER DISORDER [None]
